FAERS Safety Report 8160671-3 (Version None)
Quarter: 2012Q1

REPORT INFORMATION
  Report Type: 
  Country: None (occurrence: None)
  Receive Date: 20120223
  Receipt Date: 20120217
  Transmission Date: 20120608
  Serious: No
  Sender: FDA-Public Use
  Company Number: US-PFIZER INC-2012045256

PATIENT
  Sex: Female

DRUGS (1)
  1. PREMARIN [Suspect]
     Dosage: 0.625 MG, UNK
     Dates: start: 19820101, end: 20110901

REACTIONS (4)
  - MYALGIA [None]
  - DYSSTASIA [None]
  - HOT FLUSH [None]
  - IRRITABILITY [None]
